FAERS Safety Report 7478598-9 (Version None)
Quarter: 2011Q2

REPORT INFORMATION
  Report Type: 
  Country: None (occurrence: None)
  Receive Date: 20110511
  Receipt Date: 20110511
  Transmission Date: 20111010
  Serious: No
  Sender: FDA-Public Use
  Company Number: None

PATIENT
  Age: 39 Year
  Sex: Female
  Weight: 89 kg

DRUGS (5)
  1. LAMOTRIGINE [Suspect]
     Indication: AFFECT LABILITY
     Dosage: 100 MG P.O. BID
     Route: 048
     Dates: start: 20110322, end: 20110328
  2. LEVOTHYROXINE SODIUM [Concomitant]
  3. SIMVASTATIN [Concomitant]
  4. QUETIAPINE [Concomitant]
  5. DULOXETINE HYDROCHLORIDE [Concomitant]

REACTIONS (3)
  - PREGNANCY [None]
  - DRUG EXPOSURE DURING PREGNANCY [None]
  - RASH [None]
